FAERS Safety Report 8792796 (Version 2)
Quarter: 2012Q4

REPORT INFORMATION
  Report Type: 
  Country: JP (occurrence: JP)
  Receive Date: 20120918
  Receipt Date: 20121012
  Transmission Date: 20130627
  Serious: Yes (Death, Congenital Anomaly)
  Sender: FDA-Public Use
  Company Number: JP-GLAXOSMITHKLINE-B0830572A

PATIENT
  Age: 0 Year
  Sex: Male
  Weight: 1.3 kg

DRUGS (3)
  1. FLUTICASONE PROPIONATE [Suspect]
     Indication: ASTHMA
     Route: 064
  2. AMPICILLIN AND SULBACTAM [Suspect]
     Indication: THREATENED LABOUR
     Route: 064
  3. RITODRINE [Suspect]
     Indication: THREATENED LABOUR
     Route: 064

REACTIONS (3)
  - Otocephaly [Fatal]
  - Dentofacial anomaly [Unknown]
  - Foetal exposure during pregnancy [Unknown]
